FAERS Safety Report 24060320 (Version 1)
Quarter: 2024Q3

REPORT INFORMATION
  Report Type: Spontaneous
  Country: US (occurrence: US)
  Receive Date: 20240708
  Receipt Date: 20240708
  Transmission Date: 20241016
  Serious: Yes (Hospitalization)
  Sender: MYLAN
  Company Number: US-MYLANLABS-2024M1061600

PATIENT
  Age: 8 Year
  Sex: Male

DRUGS (2)
  1. TRIAMCINOLONE [Suspect]
     Active Substance: TRIAMCINOLONE
     Indication: Excessive granulation tissue
     Dosage: UNK
     Route: 065
  2. SILVER NITRATE [Suspect]
     Active Substance: SILVER NITRATE
     Indication: Excessive granulation tissue
     Dosage: UNK
     Route: 065

REACTIONS (1)
  - Drug ineffective [Unknown]
